FAERS Safety Report 10094249 (Version 2)
Quarter: 2014Q2

REPORT INFORMATION
  Report Type: Spontaneous
  Country: DE (occurrence: DE)
  Receive Date: 20140422
  Receipt Date: 20140422
  Transmission Date: 20141212
  Serious: Yes (Other)
  Sender: FDA-Public Use
  Company Number: DE-UCBSA-115609

PATIENT
  Age: 75 Year
  Sex: Female
  Weight: 77 kg

DRUGS (10)
  1. NEUPRO [Suspect]
     Indication: RESTLESS LEGS SYNDROME
     Dosage: 2 MG; DOSE PER INTAKE: 1, UNIT: 2, FREQUENCY: 1X PER DAY
     Route: 062
     Dates: start: 20140311
  2. PROVAS [Concomitant]
     Indication: HEART RATE INCREASED
     Dosage: 1X1
     Route: 048
     Dates: start: 1998
  3. VERAMEX [Concomitant]
     Indication: HEART RATE INCREASED
     Dosage: 2X1
     Route: 048
     Dates: start: 1998
  4. HERZ ASS [Concomitant]
     Indication: EYE DISORDER
     Dosage: 1X1
     Route: 048
     Dates: start: 2011
  5. VIGANTOLETTEN [Concomitant]
     Dosage: 1X2
     Route: 048
     Dates: start: 2011
  6. PANTOPRAZOL [Concomitant]
     Indication: GASTRITIS
     Dosage: 1X1
     Route: 048
     Dates: start: 2007
  7. MAGNESIUM [Concomitant]
     Dosage: 1X2
     Route: 048
     Dates: start: 2000
  8. FOSTER [Concomitant]
     Indication: ASTHMA
     Dosage: 100/6 MCG 1X1 PUFF
     Route: 048
     Dates: start: 2006
  9. FOSTER [Concomitant]
     Dosage: 100/6 MCG, 1X1 PUFF
     Route: 048
     Dates: start: 2006
  10. SALBUTAMOL [Concomitant]
     Indication: ASTHMA

REACTIONS (3)
  - Restless legs syndrome [Recovered/Resolved]
  - Muscle spasms [Unknown]
  - Erythema [Recovered/Resolved]
